FAERS Safety Report 19681788 (Version 3)
Quarter: 2022Q3

REPORT INFORMATION
  Report Type: Other
  Country: US (occurrence: None)
  Receive Date: 20210810
  Receipt Date: 20220808
  Transmission Date: 20221027
  Serious: No
  Sender: FDA-Public Use
  Company Number: US-ROCHE-2818433

PATIENT
  Age: 44 Year
  Sex: Female
  Weight: 72.57 kg

DRUGS (17)
  1. OCREVUS [Suspect]
     Active Substance: OCRELIZUMAB
     Indication: Relapsing multiple sclerosis
     Dosage: (PRESCRIBED AS 300 MG ON DAY 1 AND DAY 15 AND 600 MG ONCE IN 6 MONTHS)
     Route: 042
     Dates: start: 20210422
  2. OCREVUS [Suspect]
     Active Substance: OCRELIZUMAB
     Indication: Multiple sclerosis
     Route: 042
     Dates: start: 20210402
  3. OCREVUS [Suspect]
     Active Substance: OCRELIZUMAB
     Dosage: 300 MG ON DAY AND DAY 15 THEN INFUSE 600 MG EVERY 6 MONTHS
     Route: 042
     Dates: start: 20210413
  4. OCREVUS [Suspect]
     Active Substance: OCRELIZUMAB
     Route: 042
     Dates: start: 202104
  5. MELOXICAM [Concomitant]
     Active Substance: MELOXICAM
  6. VITAMIN D3 [Concomitant]
     Active Substance: CHOLECALCIFEROL
  7. BIOTIN [Concomitant]
     Active Substance: BIOTIN
  8. LOSARTAN [Concomitant]
     Active Substance: LOSARTAN
  9. ALPRAZOLAM [Concomitant]
     Active Substance: ALPRAZOLAM
  10. GABAPENTIN [Concomitant]
     Active Substance: GABAPENTIN
     Route: 048
  11. BACLOFEN [Concomitant]
     Active Substance: BACLOFEN
  12. TECFIDERA [Concomitant]
     Active Substance: DIMETHYL FUMARATE
  13. ESTRADIOL\NORETHINDRONE [Concomitant]
     Active Substance: ESTRADIOL\NORETHINDRONE
  14. METHYLPREDNISOLONE [Concomitant]
     Active Substance: METHYLPREDNISOLONE
     Route: 042
  15. ACETAMINOPHEN [Concomitant]
     Active Substance: ACETAMINOPHEN
  16. DIPHENHYDRAMINE [Concomitant]
     Active Substance: DIPHENHYDRAMINE
     Route: 042
  17. ZOFRAN [Concomitant]
     Active Substance: ONDANSETRON HYDROCHLORIDE

REACTIONS (6)
  - Throat tightness [Recovered/Resolved]
  - Headache [Recovering/Resolving]
  - Flushing [Recovering/Resolving]
  - Decreased appetite [Unknown]
  - Dehydration [Unknown]
  - COVID-19 [Unknown]

NARRATIVE: CASE EVENT DATE: 20210422
